FAERS Safety Report 4427332-5 (Version None)
Quarter: 2004Q3

REPORT INFORMATION
  Report Type: 
  Country: None (occurrence: None)
  Receive Date: 20040812
  Receipt Date: 20040809
  Transmission Date: 20050211
  Serious: No
  Sender: FDA-Public Use
  Company Number: 2004202786IL

PATIENT
  Age: 24 Year
  Sex: Female

DRUGS (8)
  1. HEPARIN SODIUM [Suspect]
     Dosage: 5000 U, BID
  2. ASPIRIN [Suspect]
     Dosage: 0.2 G, DAILY
  3. FOLIC ACID [Suspect]
     Dosage: 5 MG, DAILY
  4. FRAGMIN [Suspect]
     Dosage: 5000 U, DAILY, SUBCUTANEOUS
     Route: 058
  5. DELTA-CORTEF [Suspect]
     Dosage: 40 MG, DAILY, ORAL
     Route: 048
  6. ENOXAPARIN SODIUM [Suspect]
     Dosage: 40 MG, DAILY, SUBCUTANEOUS
     Route: 058
  7. ORGARAN [Suspect]
     Dosage: 750 U, BID, SUBCUTANEOUS
     Route: 058
  8. ENOXAPARIN SODIUM [Suspect]
     Dosage: 40 MG, DAILY, SUBCUTANEOUS
     Route: 058

REACTIONS (10)
  - ABORTION MISSED [None]
  - DRUG EXPOSURE DURING PREGNANCY [None]
  - DRUG INEFFECTIVE [None]
  - FOETAL HEART RATE ABNORMAL [None]
  - INJECTION SITE PRURITUS [None]
  - INJECTION SITE RASH [None]
  - PREGNANCY [None]
  - RASH ERYTHEMATOUS [None]
  - REFUSAL OF TREATMENT BY PATIENT [None]
  - TYPE IV HYPERSENSITIVITY REACTION [None]
